FAERS Safety Report 16741610 (Version 7)
Quarter: 2022Q1

REPORT INFORMATION
  Report Type: Spontaneous
  Country: AT (occurrence: AT)
  Receive Date: 20190826
  Receipt Date: 20220207
  Transmission Date: 20220424
  Serious: Yes (Life-Threatening, Hospitalization, Other)
  Sender: FDA-Public Use
  Company Number: AT-002147023-PHHY2B019AT182046

PATIENT
  Age: 70 Year
  Sex: Female

DRUGS (11)
  1. ICLUSIG [Suspect]
     Active Substance: PONATINIB
     Indication: Chloroma
     Dosage: 45 MILLIGRAM, QD
     Route: 048
     Dates: start: 20190709, end: 202004
  2. ICLUSIG [Suspect]
     Active Substance: PONATINIB
     Indication: Philadelphia positive chronic myeloid leukaemia
     Dosage: 30 MILLIGRAM, QD
     Route: 048
     Dates: start: 202004
  3. BOSUTINIB [Suspect]
     Active Substance: BOSUTINIB
     Indication: Chloroma
     Dosage: 400 MILLIGRAM, QD
     Route: 065
  4. DASATINIB [Suspect]
     Active Substance: DASATINIB
     Indication: Chloroma
     Dosage: 100 MILLIGRAM, QD
     Route: 065
  5. DASATINIB [Suspect]
     Active Substance: DASATINIB
     Dosage: 50 MILLIGRAM, QD
     Route: 065
  6. IBRANCE [Suspect]
     Active Substance: PALBOCICLIB
     Indication: Philadelphia positive chronic myeloid leukaemia
     Dosage: 125 MILLIGRAM, QD
     Route: 065
     Dates: start: 20200228
  7. IBRANCE [Suspect]
     Active Substance: PALBOCICLIB
     Indication: Chloroma
     Dosage: 100 MILLIGRAM, QD
     Route: 065
     Dates: start: 2020
  8. IBRANCE [Suspect]
     Active Substance: PALBOCICLIB
     Indication: Tyrosine kinase mutation
     Dosage: 100 MILLIGRAM
     Route: 065
  9. IMATINIB [Suspect]
     Active Substance: IMATINIB
     Indication: Chloroma
     Dosage: 400 MILLIGRAM, QD
     Route: 065
  10. NILOTINIB [Suspect]
     Active Substance: NILOTINIB
     Indication: Chloroma
     Dosage: UNK
     Route: 065
  11. HYDROXYUREA [Concomitant]
     Active Substance: HYDROXYUREA
     Indication: Product used for unknown indication
     Dosage: UNK
     Route: 065
     Dates: start: 2019, end: 2019

REACTIONS (7)
  - Pancytopenia [Recovered/Resolved]
  - Drug ineffective [Unknown]
  - Leukopenia [Recovered/Resolved]
  - Haematotoxicity [Recovered/Resolved]
  - Tyrosine kinase mutation [Unknown]
  - Abdominal pain upper [Unknown]
  - Off label use [Unknown]

NARRATIVE: CASE EVENT DATE: 20200101
